FAERS Safety Report 19357710 (Version 1)
Quarter: 2021Q2

REPORT INFORMATION
  Report Type: Spontaneous
  Country: US (occurrence: US)
  Receive Date: 20210531
  Receipt Date: 20210531
  Transmission Date: 20210717
  Serious: Yes (Other)
  Sender: FDA-Public Use
  Company Number: US-PURDUE-USA-2020-0228678

PATIENT

DRUGS (2)
  1. OXYCODONE HCL TABLETS (RHODES 91?490) [Suspect]
     Active Substance: OXYCODONE HYDROCHLORIDE
     Indication: PAIN MANAGEMENT
     Dosage: 6 PILLS PER DAY
     Route: 048
  2. METHADONE [Suspect]
     Active Substance: METHADONE HYDROCHLORIDE
     Indication: DRUG DEPENDENCE
     Dosage: UNKNOWN
     Route: 065

REACTIONS (1)
  - Drug dependence [Unknown]
